FAERS Safety Report 15872076 (Version 1)
Quarter: 2019Q1

REPORT INFORMATION
  Report Type: Other
  Country: US (occurrence: US)
  Receive Date: 20190126
  Receipt Date: 20190126
  Transmission Date: 20190417
  Serious: No
  Sender: FDA-Public Use
  Company Number: US-ACORDA-ACO_147621_2018

PATIENT
  Sex: Female

DRUGS (1)
  1. AMPYRA [Suspect]
     Active Substance: DALFAMPRIDINE
     Indication: PRODUCT USED FOR UNKNOWN INDICATION
     Dosage: UNK
     Route: 065

REACTIONS (8)
  - Muscle spasms [Unknown]
  - Impaired driving ability [Unknown]
  - Muscular weakness [Unknown]
  - Gait disturbance [Unknown]
  - Therapy cessation [Unknown]
  - Fatigue [Unknown]
  - Dizziness [Unknown]
  - Anger [Unknown]
